FAERS Safety Report 25812338 (Version 1)
Quarter: 2025Q3

REPORT INFORMATION
  Report Type: Spontaneous
  Country: US (occurrence: None)
  Receive Date: 20250916
  Receipt Date: 20250916
  Transmission Date: 20251021
  Serious: No
  Sender: FDA-CTU
  Company Number: None

PATIENT
  Age: 61 Month
  Sex: Female

DRUGS (1)
  1. YUVAFEM [Suspect]
     Active Substance: ESTRADIOL HEMIHYDRATE
     Indication: Vaginal infection
     Dosage: OTHER STRENGTH : 10 MCG;?OTHER QUANTITY : 8 SUPPOSITORY(IES);?OTHER FREQUENCY : TWO TIMES PER WEEK;?
     Route: 067

REACTIONS (1)
  - Skin burning sensation [None]

NARRATIVE: CASE EVENT DATE: 20250715
